FAERS Safety Report 18666850 (Version 6)
Quarter: 2021Q3

REPORT INFORMATION
  Report Type: Spontaneous
  Country: US (occurrence: US)
  Receive Date: 20201227
  Receipt Date: 20210930
  Transmission Date: 20211014
  Serious: No
  Sender: FDA-Public Use
  Company Number: US-SA-2020SA365759

PATIENT
  Age: 55 Year
  Sex: Male

DRUGS (2)
  1. CAPRELSA [Suspect]
     Active Substance: VANDETANIB
     Indication: METASTASES TO LUNG
     Dosage: 300 MG, QD
     Route: 048
     Dates: start: 20200717
  2. CAPRELSA [Suspect]
     Active Substance: VANDETANIB
     Dosage: UNK
     Route: 048
     Dates: start: 20200717

REACTIONS (8)
  - Dysuria [Unknown]
  - Furuncle [Unknown]
  - Weight increased [Unknown]
  - Sexual dysfunction [Unknown]
  - Blood pressure increased [Unknown]
  - Off label use [Unknown]
  - Product dose omission issue [Unknown]
  - Pustule [Unknown]
